FAERS Safety Report 4701311-2 (Version None)
Quarter: 2005Q2

REPORT INFORMATION
  Report Type: 
  Country: None (occurrence: None)
  Receive Date: 20050628
  Receipt Date: 20050609
  Transmission Date: 20051028
  Serious: Yes (Other)
  Sender: FDA-Public Use
  Company Number: PHRM2005FR01786

PATIENT
  Age: 14 Year
  Sex: Female
  Weight: 60 kg

DRUGS (4)
  1. TRILEPTAL [Suspect]
     Indication: EPILEPSY
     Dosage: 3 TIMES 1.8 G OVER TWO DAYS
     Route: 048
     Dates: start: 20050606, end: 20050607
  2. TRILEPTAL [Suspect]
     Dosage: 900 MG, BID
     Route: 048
     Dates: start: 20010101, end: 20050605
  3. CLONAZEPAM [Concomitant]
     Indication: EPILEPSY
  4. PHENYTOIN [Concomitant]
     Indication: EPILEPSY

REACTIONS (2)
  - MEDICATION ERROR [None]
  - SOMNOLENCE [None]
